FAERS Safety Report 25292135 (Version 1)
Quarter: 2025Q2

REPORT INFORMATION
  Report Type: Spontaneous
  Country: US (occurrence: US)
  Receive Date: 20250510
  Receipt Date: 20250510
  Transmission Date: 20250717
  Serious: No
  Sender: SANOFI AVENTIS
  Company Number: US-SA-2025SA122027

PATIENT
  Age: 54 Year
  Sex: Female

DRUGS (3)
  1. DUPIXENT [Suspect]
     Active Substance: DUPILUMAB
     Indication: Eczema
     Route: 058
     Dates: start: 20250304, end: 20250304
  2. DUPIXENT [Suspect]
     Active Substance: DUPILUMAB
     Dosage: 300 MG, QOW
     Route: 058
     Dates: start: 202503
  3. OTEZLA [Concomitant]
     Active Substance: APREMILAST

REACTIONS (6)
  - Anxiety [Unknown]
  - Sleep disorder due to a general medical condition [Recovering/Resolving]
  - Eczema [Recovering/Resolving]
  - Pruritus [Recovering/Resolving]
  - Skin haemorrhage [Recovering/Resolving]
  - Skin exfoliation [Recovering/Resolving]

NARRATIVE: CASE EVENT DATE: 20250101
